FAERS Safety Report 4269851-0 (Version None)
Quarter: 2004Q1

REPORT INFORMATION
  Report Type: 
  Country: None (occurrence: None)
  Receive Date: 20040112
  Receipt Date: 20040112
  Transmission Date: 20041129
  Serious: Yes (Hospitalization)
  Sender: FDA-Public Use
  Company Number: None

PATIENT
  Age: 84 Year
  Sex: Male

DRUGS (9)
  1. OXYCODONE HCL [Suspect]
     Indication: PAIN
  2. SIMVASTATIN [Concomitant]
  3. AMITRIPTYLINE HCL [Concomitant]
  4. OSCAL [Concomitant]
  5. CARVEDILOL [Concomitant]
  6. CLOPIDOGREL [Concomitant]
  7. LEVOTHYROXINE SODIUM [Concomitant]
  8. NIFEDIPINE [Concomitant]
  9. RABEPRAZOLE SODIUM [Concomitant]

REACTIONS (1)
  - MENTAL STATUS CHANGES [None]
